FAERS Safety Report 13931850 (Version 4)
Quarter: 2017Q4

REPORT INFORMATION
  Report Type: Report from Study
  Country: None (occurrence: AU)
  Receive Date: 20170904
  Receipt Date: 20171031
  Transmission Date: 20180320
  Serious: Yes (Hospitalization, Other)
  Sender: FDA-Public Use
  Company Number: AU-ABBVIE-17K-008-2085520-00

PATIENT
  Age: 74 Year
  Sex: Female

DRUGS (2)
  1. HUMIRA [Suspect]
     Active Substance: ADALIMUMAB
     Indication: CROHN^S DISEASE
     Route: 058
     Dates: start: 20170815
  2. MORPHINE [Concomitant]
     Active Substance: MORPHINE
     Indication: PRODUCT USED FOR UNKNOWN INDICATION

REACTIONS (21)
  - Wrong technique in product usage process [Unknown]
  - Injection site pain [Recovering/Resolving]
  - Influenza [Not Recovered/Not Resolved]
  - Oral mucosal exfoliation [Not Recovered/Not Resolved]
  - Lymphadenopathy [Not Recovered/Not Resolved]
  - Productive cough [Recovered/Resolved]
  - Injection site bruising [Recovering/Resolving]
  - Panic attack [Recovered/Resolved]
  - Anal incontinence [Unknown]
  - Oropharyngeal pain [Not Recovered/Not Resolved]
  - Paraesthesia [Recovered/Resolved]
  - Device issue [Unknown]
  - Dyspnoea [Recovered/Resolved]
  - Urinary incontinence [Unknown]
  - Seasonal allergy [Unknown]
  - Agoraphobia [Unknown]
  - Cough [Recovered/Resolved]
  - Injection site rash [Recovering/Resolving]
  - Chest pain [Recovered/Resolved]
  - Asthma [Unknown]
  - Headache [Not Recovered/Not Resolved]

NARRATIVE: CASE EVENT DATE: 2017
